FAERS Safety Report 15500203 (Version 3)
Quarter: 2019Q1

REPORT INFORMATION
  Report Type: Report from Study
  Country: US (occurrence: US)
  Receive Date: 20181015
  Receipt Date: 20190325
  Transmission Date: 20190417
  Serious: Yes (Death, Hospitalization)
  Sender: FDA-Public Use
  Company Number: US-CELGENEUS-USA-20180103550

PATIENT
  Age: 83 Year
  Sex: Male
  Weight: 93.7 kg

DRUGS (1)
  1. VIDAZA [Suspect]
     Active Substance: AZACITIDINE
     Indication: ACUTE MYELOID LEUKAEMIA
     Dosage: 165 MILLIGRAM
     Route: 041
     Dates: start: 20170109, end: 20170113

REACTIONS (3)
  - Asthenia [Not Recovered/Not Resolved]
  - Pneumonia aspiration [Fatal]
  - Asthenia [Recovered/Resolved]

NARRATIVE: CASE EVENT DATE: 20170116
